FAERS Safety Report 24616754 (Version 1)
Quarter: 2024Q4

REPORT INFORMATION
  Report Type: Spontaneous
  Country: US (occurrence: US)
  Receive Date: 20241114
  Receipt Date: 20241114
  Transmission Date: 20250115
  Serious: No
  Sender: OTSUKA
  Company Number: US-OTSUKA-2024_000145

PATIENT
  Sex: Female

DRUGS (1)
  1. NUEDEXTA [Suspect]
     Active Substance: DEXTROMETHORPHAN HYDROBROMIDE\QUINIDINE SULFATE
     Indication: Product used for unknown indication
     Dosage: UNK, BID
     Route: 065

REACTIONS (2)
  - Dysphagia [Unknown]
  - Wrong technique in product usage process [Unknown]
